FAERS Safety Report 9896304 (Version 2)
Quarter: 2014Q1

REPORT INFORMATION
  Report Type: Spontaneous
  Country: US (occurrence: US)
  Receive Date: 20140213
  Receipt Date: 20140213
  Transmission Date: 20141002
  Serious: Yes (Hospitalization, Other)
  Sender: FDA-Public Use
  Company Number: US-BRISTOL-MYERS SQUIBB COMPANY-18826735

PATIENT
  Age: 86 Year
  Sex: Female

DRUGS (6)
  1. ORENCIA [Suspect]
  2. XELJANZ [Suspect]
     Indication: RHEUMATOID ARTHRITIS
     Dosage: TAB
     Route: 048
     Dates: start: 20130211, end: 20130307
  3. GOLD [Suspect]
     Dosage: INJ
  4. METHOTREXATE SODIUM INJ [Suspect]
  5. ETANERCEPT [Suspect]
  6. PREDNISONE [Concomitant]
     Indication: RHEUMATOID ARTHRITIS
     Dates: end: 20130308

REACTIONS (2)
  - Cellulitis [Unknown]
  - Drug ineffective [Unknown]
